FAERS Safety Report 5195022-X (Version None)
Quarter: 2006Q4

REPORT INFORMATION
  Report Type: 
  Country: None (occurrence: None)
  Receive Date: 20061229
  Receipt Date: 20061221
  Transmission Date: 20070319
  Serious: Yes (Other)
  Sender: FDA-Public Use
  Company Number: US-JNJFOC-20061206073

PATIENT
  Sex: Female
  Weight: 93.44 kg

DRUGS (6)
  1. FENTANYL TRANSDERMAL SYSTEM [Suspect]
     Indication: NEPHROLITHIASIS
     Route: 062
  2. TIZANIDINE HCL [Interacting]
     Indication: MUSCLE RELAXANT THERAPY
     Route: 048
  3. KLONOPIN [Concomitant]
     Indication: ANXIETY
     Route: 048
  4. LYRICA [Concomitant]
     Indication: PAIN
     Route: 048
  5. PHIOLA [Concomitant]
     Indication: RENAL DISORDER
     Route: 048
  6. UROCIT-K [Concomitant]
     Route: 048

REACTIONS (4)
  - DRUG INTERACTION [None]
  - FEELING DRUNK [None]
  - HALLUCINATION [None]
  - MALAISE [None]
